FAERS Safety Report 23714745 (Version 2)
Quarter: 2024Q2

REPORT INFORMATION
  Report Type: Spontaneous
  Country: US (occurrence: US)
  Receive Date: 20240406
  Receipt Date: 20240417
  Transmission Date: 20240716
  Serious: Yes (Hospitalization)
  Sender: FDA-Public Use
  Company Number: US-TEVA-VS-3175978

PATIENT
  Age: 34 Year
  Sex: Male

DRUGS (2)
  1. UZEDY [Suspect]
     Active Substance: RISPERIDONE
     Indication: Schizophrenia
     Dosage: FORM STRENGTH: 125/0.35 MG/ML
     Route: 065
     Dates: start: 20240209
  2. UZEDY [Suspect]
     Active Substance: RISPERIDONE
     Indication: Schizoaffective disorder

REACTIONS (2)
  - Hospitalisation [Unknown]
  - Product complaint [Unknown]

NARRATIVE: CASE EVENT DATE: 20240101
